FAERS Safety Report 6161761-7 (Version None)
Quarter: 2009Q2

REPORT INFORMATION
  Report Type: 
  Country: None (occurrence: None)
  Receive Date: 20090417
  Receipt Date: 20090409
  Transmission Date: 20091009
  Serious: Yes (Other)
  Sender: FDA-Public Use
  Company Number: 2009SP007892

PATIENT
  Age: 7 Year
  Sex: Male
  Weight: 24.4942 kg

DRUGS (2)
  1. CLARITIN [Suspect]
     Indication: SEASONAL ALLERGY
     Dosage: 10 MG; QD; PO
     Route: 048
     Dates: start: 20090409, end: 20090409
  2. INHALER [Concomitant]

REACTIONS (1)
  - ASTHMA [None]
